FAERS Safety Report 10227092 (Version 3)
Quarter: 2014Q2

REPORT INFORMATION
  Report Type: Report from Study
  Country: DE (occurrence: DE)
  Receive Date: 20140610
  Receipt Date: 20140619
  Transmission Date: 20141212
  Serious: Yes (Hospitalization)
  Sender: FDA-Public Use
  Company Number: DE-ASTELLAS-2011EU001798

PATIENT
  Age: 5 Year
  Sex: Female
  Weight: 21 kg

DRUGS (4)
  1. TACROLIMUS [Suspect]
     Indication: DERMATITIS ATOPIC
     Dosage: 0.03%, ONCE A DAY, TWICE WEEKLY
     Route: 061
     Dates: start: 20130411
  2. TACROLIMUS [Suspect]
     Dosage: 0.03%, ONCE A DAY, TWICE WEEKLY
     Route: 061
     Dates: start: 20120411
  3. TACROLIMUS [Suspect]
     Dosage: 0.03%, ONCE A DAY, TWICE WEEKLY
     Route: 061
     Dates: start: 201003
  4. TACROLIMUS [Suspect]
     Dosage: 0.03%, TWICE DAILY
     Route: 061
     Dates: start: 20091008

REACTIONS (2)
  - Gastroenteritis norovirus [Recovered/Resolved]
  - Gastroenteritis norovirus [Recovered/Resolved]
